FAERS Safety Report 5469513-8 (Version None)
Quarter: 2007Q3

REPORT INFORMATION
  Report Type: 
  Country: None (occurrence: None)
  Receive Date: 20070927
  Receipt Date: 20070925
  Transmission Date: 20080115
  Serious: Yes (Other)
  Sender: FDA-Public Use
  Company Number: A0684189A

PATIENT
  Age: 5 Year
  Sex: Male
  Weight: 20 kg

DRUGS (1)
  1. CLAVULIN [Suspect]
     Indication: PNEUMONIA
     Dosage: 5ML TWICE PER DAY
     Route: 048
     Dates: start: 20070914, end: 20070919

REACTIONS (6)
  - EYELID OEDEMA [None]
  - HAEMATURIA [None]
  - HEPATOMEGALY [None]
  - OEDEMA [None]
  - SPLENOMEGALY [None]
  - URTICARIA [None]
